FAERS Safety Report 7426328-9 (Version None)
Quarter: 2011Q2

REPORT INFORMATION
  Report Type: 
  Country: None (occurrence: None)
  Receive Date: 20110420
  Receipt Date: 20110411
  Transmission Date: 20111010
  Serious: Yes (Other)
  Sender: FDA-Public Use
  Company Number: B0713242A

PATIENT
  Sex: Male
  Weight: 14.5 kg

DRUGS (17)
  1. ETOPOSIDE [Suspect]
     Indication: ALLOGENIC BONE MARROW TRANSPLANTATION THERAPY
     Dosage: 100MGM2 PER DAY
     Route: 042
     Dates: start: 20101127, end: 20101129
  2. NEOPHAGEN C [Concomitant]
     Dosage: 20ML PER DAY
     Route: 042
     Dates: end: 20101130
  3. ALKERAN [Suspect]
     Indication: ALLOGENIC BONE MARROW TRANSPLANTATION THERAPY
     Dosage: 70MGM2 PER DAY
     Route: 042
     Dates: start: 20101122, end: 20101122
  4. BIOFERMIN [Concomitant]
     Dosage: 1.5G PER DAY
     Route: 048
     Dates: start: 20101122
  5. LEPETAN [Concomitant]
     Dosage: .5IUAX PER DAY
     Dates: start: 20101128, end: 20110207
  6. METHOTREXATE [Concomitant]
     Indication: IMMUNOSUPPRESSION
     Dosage: 4.5MG PER DAY
     Route: 065
     Dates: start: 20101202, end: 20110314
  7. MAXIPIME [Concomitant]
     Dosage: 400MG PER DAY
     Route: 042
     Dates: end: 20101127
  8. DIAMOX [Concomitant]
     Dosage: 70MG PER DAY
     Route: 042
     Dates: start: 20101124, end: 20101129
  9. ALKERAN [Suspect]
     Dosage: 70MGM2 PER DAY
     Route: 042
     Dates: start: 20101128, end: 20101129
  10. FLUDARABINE PHOSPHATE [Suspect]
     Indication: ALLOGENIC BONE MARROW TRANSPLANTATION THERAPY
     Dosage: 30MGM2 PER DAY
     Route: 042
     Dates: start: 20101124, end: 20101129
  11. TACROLIMUS HYDRATE [Concomitant]
     Indication: IMMUNOSUPPRESSION
     Dosage: .2MG PER DAY
     Route: 065
     Dates: start: 20101130, end: 20110314
  12. PREDONINE [Concomitant]
     Indication: IMMUNOSUPPRESSION
     Dosage: 14MG PER DAY
     Route: 065
     Dates: start: 20101202, end: 20110121
  13. GRANISETRON HCL [Concomitant]
     Dosage: 1MG PER DAY
     Route: 042
     Dates: end: 20101207
  14. DENOSINE (GANCYCLOVIR) [Concomitant]
     Dosage: 70MG PER DAY
     Route: 042
     Dates: start: 20101123, end: 20101130
  15. FUNGUARD [Concomitant]
     Dosage: 50MG PER DAY
     Route: 042
     Dates: end: 20101206
  16. MINOCYCLINE HCL [Concomitant]
     Dosage: 30MG PER DAY
     Route: 042
     Dates: start: 20101127, end: 20101130
  17. PREDONINE [Concomitant]
     Dosage: 10MG PER DAY
     Route: 065
     Dates: start: 20110131, end: 20110314

REACTIONS (1)
  - FEBRILE NEUTROPENIA [None]
